FAERS Safety Report 6029180-1 (Version None)
Quarter: 2009Q1

REPORT INFORMATION
  Report Type: 
  Country: None (occurrence: None)
  Receive Date: 20090102
  Receipt Date: 20081218
  Transmission Date: 20090719
  Serious: Yes (Other)
  Sender: FDA-Public Use
  Company Number: 2008SP022468

PATIENT
  Age: 55 Year
  Sex: Female

DRUGS (2)
  1. PEG-INTRON [Suspect]
     Indication: HEPATITIS C
     Dosage: SC
     Route: 058
     Dates: start: 20081031
  2. RIBAPAK [Suspect]
     Indication: HEPATITIS C
     Dosage: PO
     Route: 048
     Dates: start: 20081031

REACTIONS (27)
  - ABDOMINAL PAIN [None]
  - AMNESIA [None]
  - ANAEMIA [None]
  - ANOREXIA [None]
  - AVOIDANT PERSONALITY DISORDER [None]
  - CHILLS [None]
  - CHRONIC OBSTRUCTIVE PULMONARY DISEASE [None]
  - CONDITION AGGRAVATED [None]
  - CONSTIPATION [None]
  - DYSGEUSIA [None]
  - DYSPNOEA [None]
  - FATIGUE [None]
  - FEELING HOT [None]
  - HAEMATOCHEZIA [None]
  - HYPOPHAGIA [None]
  - IRRITABILITY [None]
  - MENTAL IMPAIRMENT [None]
  - MOUTH HAEMORRHAGE [None]
  - NAUSEA [None]
  - ORAL PAIN [None]
  - PAIN [None]
  - PALLOR [None]
  - PARANOIA [None]
  - RECTAL HAEMORRHAGE [None]
  - TOOTH LOSS [None]
  - TOOTHACHE [None]
  - VISION BLURRED [None]
